FAERS Safety Report 10818662 (Version 1)
Quarter: 2015Q1

REPORT INFORMATION
  Report Type: Report from Study
  Country: US (occurrence: None)
  Receive Date: 20150213
  Receipt Date: 20150213
  Transmission Date: 20150721
  Serious: Yes (Hospitalization)
  Sender: FDA-Public Use
  Company Number: 2015BI011459

PATIENT
  Age: 55 Year
  Sex: Male

DRUGS (2)
  1. AVONEX [Suspect]
     Active Substance: INTERFERON BETA-1A
     Indication: MULTIPLE SCLEROSIS
     Route: 030
     Dates: start: 200004, end: 20140409
  2. TECFIDERA [Concomitant]
     Active Substance: DIMETHYL FUMARATE

REACTIONS (7)
  - Osteoporosis [None]
  - Muscle spasms [None]
  - Alopecia [None]
  - Influenza like illness [None]
  - Loss of consciousness [None]
  - Chills [None]
  - Feeling abnormal [None]

NARRATIVE: CASE EVENT DATE: 20000410
